FAERS Safety Report 10164296 (Version 1)
Quarter: 2014Q2

REPORT INFORMATION
  Report Type: Spontaneous
  Country: US (occurrence: US)
  Receive Date: 20140510
  Receipt Date: 20140510
  Transmission Date: 20141212
  Serious: No
  Sender: FDA-Public Use
  Company Number: US-BRISTOL-MYERS SQUIBB COMPANY-19488337

PATIENT
  Age: 65 Year
  Sex: Female
  Weight: 85.26 kg

DRUGS (2)
  1. BYDUREON [Suspect]
     Indication: TYPE 2 DIABETES MELLITUS
     Dates: start: 201210
  2. METFORMIN HCL [Suspect]
     Route: 048

REACTIONS (4)
  - Blood glucose increased [Unknown]
  - Weight decreased [Unknown]
  - Weight increased [Unknown]
  - Circumstance or information capable of leading to medication error [Unknown]
